FAERS Safety Report 10186405 (Version 1)
Quarter: 2014Q2

REPORT INFORMATION
  Report Type: Spontaneous
  Country: US (occurrence: US)
  Receive Date: 20140521
  Receipt Date: 20140521
  Transmission Date: 20141212
  Serious: No
  Sender: FDA-Public Use
  Company Number: US-ASTRAZENECA-2013SE67270

PATIENT
  Age: 75 Year
  Sex: Female
  Weight: 63 kg

DRUGS (4)
  1. PULMICORT FLEXHALER [Suspect]
     Indication: ASTHMA
     Dosage: 180 MCG BID
     Route: 055
     Dates: start: 20130808
  2. NEXIUM [Suspect]
     Indication: GASTROOESOPHAGEAL REFLUX DISEASE
     Route: 048
     Dates: start: 20130408
  3. NEXIUM [Suspect]
     Indication: GASTROOESOPHAGEAL REFLUX DISEASE
     Route: 048
     Dates: start: 20130408
  4. ALDACTONE [Concomitant]
     Indication: FLUID RETENTION

REACTIONS (7)
  - Pulmonary congestion [Unknown]
  - Pollakiuria [Unknown]
  - Fluid retention [Unknown]
  - Speech disorder [Unknown]
  - Drug intolerance [Unknown]
  - Alopecia [Unknown]
  - Intentional product misuse [Unknown]
